FAERS Safety Report 5146104-X (Version None)
Quarter: 2006Q4

REPORT INFORMATION
  Report Type: 
  Country: None (occurrence: None)
  Receive Date: 20061108
  Receipt Date: 20060803
  Transmission Date: 20070319
  Serious: Yes (Other)
  Sender: FDA-Public Use
  Company Number: 2006AC01435

PATIENT
  Age: 21484 Day
  Sex: Male

DRUGS (3)
  1. CASODEX [Suspect]
     Dates: start: 20060214
  2. ZOLADEX [Suspect]
     Indication: PROSTATE CANCER
     Route: 058
     Dates: start: 20060214
  3. LIPITOR [Concomitant]

REACTIONS (1)
  - CARPAL TUNNEL SYNDROME [None]
